FAERS Safety Report 16379114 (Version 1)
Quarter: 2019Q2

REPORT INFORMATION
  Report Type: Spontaneous
  Country: US (occurrence: US)
  Receive Date: 20190531
  Receipt Date: 20190531
  Transmission Date: 20190711
  Serious: Yes (Other)
  Sender: FDA-Public Use
  Company Number: US-TEVA-2019-US-1058826

PATIENT
  Age: 48 Year
  Sex: Male

DRUGS (1)
  1. TENOFOVIR TEVA [Suspect]
     Active Substance: TENOFOVIR
     Route: 065

REACTIONS (2)
  - Suicidal behaviour [Unknown]
  - Depression [Unknown]
